FAERS Safety Report 7645555-9 (Version None)
Quarter: 2011Q3

REPORT INFORMATION
  Report Type: 
  Country: None (occurrence: None)
  Receive Date: 20110729
  Receipt Date: 20110719
  Transmission Date: 20111222
  Serious: Yes (Other)
  Sender: FDA-Public Use
  Company Number: US-ROCHE-760364

PATIENT
  Sex: Female
  Weight: 45.4 kg

DRUGS (3)
  1. ACCUTANE [Suspect]
     Indication: HIDRADENITIS
     Route: 065
     Dates: start: 19861001
  2. ACCUTANE [Suspect]
     Route: 065
     Dates: start: 19940101, end: 19950101
  3. ACCUTANE [Suspect]
     Route: 065
     Dates: start: 19930301, end: 19940301

REACTIONS (10)
  - RECTAL HAEMORRHAGE [None]
  - COLITIS ULCERATIVE [None]
  - OSTEOPOROSIS [None]
  - DEPRESSION [None]
  - IRRITABLE BOWEL SYNDROME [None]
  - INTESTINAL OBSTRUCTION [None]
  - CROHN'S DISEASE [None]
  - INFLAMMATORY BOWEL DISEASE [None]
  - ABDOMINAL PAIN [None]
  - SUICIDAL IDEATION [None]
